FAERS Safety Report 16865173 (Version 2)
Quarter: 2019Q4

REPORT INFORMATION
  Report Type: Spontaneous
  Country: US (occurrence: US)
  Receive Date: 20190930
  Receipt Date: 20191009
  Transmission Date: 20200122
  Serious: Yes (Other)
  Sender: FDA-Public Use
  Company Number: US-LUPIN PHARMACEUTICALS INC.-2019-06094

PATIENT
  Age: 57 Year
  Sex: Female

DRUGS (1)
  1. TOPIRAMATE. [Suspect]
     Active Substance: TOPIRAMATE
     Indication: PRODUCT USED FOR UNKNOWN INDICATION
     Dosage: 50 MILLIGRAM, QD FOR 1 MONTH
     Route: 065

REACTIONS (4)
  - Ciliary body disorder [Recovered/Resolved]
  - Choroidal effusion [Recovered/Resolved]
  - Iris disorder [Recovered/Resolved]
  - Angle closure glaucoma [Recovered/Resolved]
